FAERS Safety Report 9867434 (Version 1)
Quarter: 2014Q1

REPORT INFORMATION
  Report Type: Spontaneous
  Country: US (occurrence: None)
  Receive Date: 20140203
  Receipt Date: 20140203
  Transmission Date: 20141002
  Serious: Yes (Death)
  Sender: FDA-Public Use
  Company Number: None

PATIENT
  Age: 55 Year
  Sex: Male

DRUGS (1)
  1. LETAIRIS [Suspect]
     Indication: PULMONARY ARTERIAL HYPERTENSION
     Route: 048
     Dates: start: 201308, end: 201401

REACTIONS (18)
  - Cardiac failure congestive [None]
  - Hyperkalaemia [None]
  - Acute respiratory failure [None]
  - Pneumonia [None]
  - Abdominal pain [None]
  - Diarrhoea [None]
  - Urine output decreased [None]
  - Clostridium test positive [None]
  - Sepsis [None]
  - Renal failure acute [None]
  - Clostridium difficile colitis [None]
  - Prerenal failure [None]
  - Acidosis [None]
  - General physical health deterioration [None]
  - Hypotension [None]
  - Hypoxia [None]
  - Blood lactic acid increased [None]
  - Cardio-respiratory arrest [None]
